FAERS Safety Report 9331384 (Version 1)
Quarter: 2013Q2

REPORT INFORMATION
  Report Type: Report from Study
  Country: CA (occurrence: CA)
  Receive Date: 20130605
  Receipt Date: 20130605
  Transmission Date: 20140414
  Serious: Yes (Hospitalization)
  Sender: FDA-Public Use
  Company Number: CA-JNJFOC-20130522050

PATIENT
  Age: 84 Year
  Sex: Female

DRUGS (1)
  1. SIMPONI [Suspect]
     Indication: RHEUMATOID ARTHRITIS
     Route: 058
     Dates: start: 20121122

REACTIONS (4)
  - Infection [Unknown]
  - Pulmonary congestion [Unknown]
  - Joint swelling [Unknown]
  - Local swelling [Unknown]
